FAERS Safety Report 24826885 (Version 1)
Quarter: 2025Q1

REPORT INFORMATION
  Report Type: Spontaneous
  Country: CN (occurrence: CN)
  Receive Date: 20250109
  Receipt Date: 20250109
  Transmission Date: 20250408
  Serious: Yes (Hospitalization, Other)
  Sender: SANDOZ
  Company Number: CN-SANDOZ-SDZ2025CN000993

PATIENT
  Age: 39 Year
  Sex: Male

DRUGS (1)
  1. VORICONAZOLE [Suspect]
     Active Substance: VORICONAZOLE
     Indication: Antifungal treatment
     Dosage: 200 MG, Q12H
     Route: 065
     Dates: start: 20240707

REACTIONS (4)
  - Affect lability [Recovered/Resolved]
  - Disorientation [Recovering/Resolving]
  - Hallucination [Recovering/Resolving]
  - Drug-disease interaction [Recovered/Resolved]

NARRATIVE: CASE EVENT DATE: 20240601
